FAERS Safety Report 7318914-1 (Version None)
Quarter: 2011Q1

REPORT INFORMATION
  Report Type: 
  Country: None (occurrence: None)
  Receive Date: 20110228
  Receipt Date: 20110215
  Transmission Date: 20110831
  Serious: Yes (Other)
  Sender: FDA-Public Use
  Company Number: CA-ELI_LILLY_AND_COMPANY-CA201102004721

PATIENT
  Sex: Female

DRUGS (1)
  1. CYMBALTA [Suspect]
     Indication: SOFT TISSUE DISORDER
     Dosage: 60 MG, DAILY (1/D)

REACTIONS (2)
  - RETINAL DETACHMENT [None]
  - OFF LABEL USE [None]
